FAERS Safety Report 6488003-7 (Version None)
Quarter: 2009Q4

REPORT INFORMATION
  Report Type: 
  Country: None (occurrence: None)
  Receive Date: 20091210
  Receipt Date: 20091201
  Transmission Date: 20100525
  Serious: Yes (Other)
  Sender: FDA-Public Use
  Company Number: PHHY2009FR53402

PATIENT
  Sex: Female

DRUGS (1)
  1. TAREG [Suspect]
     Indication: HYPERTENSION
     Dosage: 40 MG, QD
     Route: 065

REACTIONS (3)
  - FORMICATION [None]
  - RAYNAUD'S PHENOMENON [None]
  - SKIN DISCOLOURATION [None]
